FAERS Safety Report 10057093 (Version 2)
Quarter: 2014Q2

REPORT INFORMATION
  Report Type: Spontaneous
  Country: GB (occurrence: GB)
  Receive Date: 20140403
  Receipt Date: 20140606
  Transmission Date: 20141212
  Serious: Yes (Hospitalization, Other)
  Sender: FDA-Public Use
  Company Number: GB-TEVA-470122ISR

PATIENT
  Age: 84 Year
  Sex: Female

DRUGS (12)
  1. WARFARIN [Suspect]
     Indication: ANTICOAGULANT THERAPY
     Dosage: RESTARTED ON 06JAN2014
     Dates: start: 20110520, end: 20131122
  2. WARFARIN [Suspect]
     Indication: ATRIAL FIBRILLATION
  3. WARFARIN [Suspect]
     Indication: CEREBROVASCULAR ACCIDENT
  4. FUROSEMIDE [Suspect]
     Dosage: 20 MILLIGRAM DAILY;
  5. ELIQUIS [Suspect]
     Indication: CEREBROVASCULAR ACCIDENT
     Dosage: 5 MILLIGRAM DAILY;
     Route: 048
     Dates: start: 20131204, end: 20140103
  6. ELIQUIS [Suspect]
     Indication: ATRIAL FIBRILLATION
     Route: 048
     Dates: start: 20131204, end: 20140103
  7. DOXAZOSIN [Concomitant]
     Dosage: 4 MILLIGRAM DAILY;
  8. EZETIMIBE [Concomitant]
     Dosage: 20 MILLIGRAM DAILY;
  9. FELODIPINE [Concomitant]
     Dosage: 10 MILLIGRAM DAILY; MR TABS
  10. ISOSORBIDE MONONITRATE [Concomitant]
     Dosage: 60 MILLIGRAM DAILY; MR TABS
  11. LANSOPRAZOLE [Concomitant]
     Dosage: 15 MILLIGRAM DAILY;
  12. NICORANDIL [Concomitant]
     Dosage: 20 MILLIGRAM DAILY;

REACTIONS (2)
  - Ischaemic stroke [Unknown]
  - Renal impairment [Unknown]
